FAERS Safety Report 8806757 (Version 2)
Quarter: 2012Q4

REPORT INFORMATION
  Report Type: 
  Country: US (occurrence: US)
  Receive Date: 20120925
  Receipt Date: 20121004
  Transmission Date: 20130627
  Serious: No
  Sender: FDA-Public Use
  Company Number: US-ASTRAZENECA-2012SE71781

PATIENT
  Age: 58 Year
  Sex: Female

DRUGS (1)
  1. SYMBICORT PMDI [Suspect]
     Dosage: Unknown dose and frequency
     Route: 055

REACTIONS (3)
  - Chronic obstructive pulmonary disease [Unknown]
  - Malaise [Unknown]
  - Intentional drug misuse [Unknown]
